FAERS Safety Report 7435518-0 (Version None)
Quarter: 2011Q2

REPORT INFORMATION
  Report Type: 
  Country: None (occurrence: None)
  Receive Date: 20110415
  Receipt Date: 20100922
  Transmission Date: 20111010
  Serious: Yes (Hospitalization)
  Sender: FDA-Public Use
  Company Number: BE-021107

PATIENT
  Age: 73 Year
  Sex: Female

DRUGS (1)
  1. LEUKERAN [Suspect]
     Indication: CHRONIC LYMPHOCYTIC LEUKAEMIA
     Dosage: 40 MG   40 MG QD
     Dates: start: 20100706, end: 20100908

REACTIONS (4)
  - BLISTER [None]
  - RIB FRACTURE [None]
  - FLANK PAIN [None]
  - PHLEBITIS [None]
